FAERS Safety Report 4293833-6 (Version None)
Quarter: 2004Q1

REPORT INFORMATION
  Report Type: 
  Country: None (occurrence: None)
  Receive Date: 20040210
  Receipt Date: 20040205
  Transmission Date: 20041129
  Serious: Yes (Other)
  Sender: FDA-Public Use
  Company Number: 2004197476DE

PATIENT
  Sex: Female

DRUGS (1)
  1. CABERGOLINE [Suspect]
     Dosage: ORAL
     Route: 048

REACTIONS (1)
  - PULMONARY HYPERTENSION [None]
